FAERS Safety Report 16709844 (Version 2)
Quarter: 2019Q3

REPORT INFORMATION
  Report Type: Spontaneous
  Country: IR (occurrence: IR)
  Receive Date: 20190816
  Receipt Date: 20190918
  Transmission Date: 20191004
  Serious: Yes (Hospitalization, Other)
  Sender: FDA-Public Use
  Company Number: IR-SA-2019SA222183

PATIENT
  Age: 66 Year
  Sex: Female

DRUGS (2)
  1. CLOPIDOGREL BISULFATE. [Suspect]
     Active Substance: CLOPIDOGREL BISULFATE
     Indication: ANTIPLATELET THERAPY
     Dosage: 75 MG, QD
     Route: 065
  2. ACETYLSALICYLIC ACID [Suspect]
     Active Substance: ASPIRIN
     Indication: ANTIPLATELET THERAPY
     Dosage: 80 MG, QD
     Route: 065

REACTIONS (8)
  - Melaena [Recovered/Resolved]
  - Haemoglobin decreased [Recovering/Resolving]
  - Pleural effusion [Unknown]
  - Dysphagia [Recovered/Resolved]
  - Chest pain [Recovered/Resolved]
  - Odynophagia [Recovered/Resolved]
  - Oesophageal mucosal dissection [Recovered/Resolved]
  - Haematemesis [Recovered/Resolved]
